FAERS Safety Report 9917493 (Version 2)
Quarter: 2014Q2

REPORT INFORMATION
  Report Type: Spontaneous
  Country: US (occurrence: US)
  Receive Date: 20140221
  Receipt Date: 20140417
  Transmission Date: 20141212
  Serious: Yes (Other)
  Sender: FDA-Public Use
  Company Number: US-FRI-1000054378

PATIENT
  Age: 54 Year
  Sex: Female

DRUGS (13)
  1. VIIBRYD [Suspect]
     Indication: DEPRESSION
     Dosage: 10 MG
     Dates: start: 20131017, end: 20131023
  2. VIIBRYD [Suspect]
     Dosage: 20 MG
     Dates: start: 20131024, end: 20131030
  3. VIIBRYD [Suspect]
     Indication: DEPRESSION
     Dosage: 40 MG
     Dates: start: 20131031, end: 20131101
  4. VIIBRYD [Suspect]
     Indication: DEPRESSION
     Dosage: 10 MG
     Dates: start: 201401, end: 201401
  5. COPAXONE [Suspect]
     Indication: MULTIPLE SCLEROSIS
     Dates: start: 20130301, end: 201403
  6. LISINOPRIL [Suspect]
     Indication: HYPERTENSION
  7. REMERON [Concomitant]
     Indication: DEPRESSION
     Dates: end: 201312
  8. HYDROCHLOROTHIAZIDE [Concomitant]
     Indication: HYPERTENSION
  9. OMEPRAZOLE [Concomitant]
     Indication: GASTROOESOPHAGEAL REFLUX DISEASE
  10. ESTRADIOL [Concomitant]
     Indication: HORMONE REPLACEMENT THERAPY
  11. BABY ASPIRIN [Concomitant]
  12. NORTRIPTYLINE [Concomitant]
     Indication: MULTIPLE SCLEROSIS
  13. BACLOFEN [Concomitant]
     Indication: MUSCLE SPASMS

REACTIONS (5)
  - Hypersensitivity [Recovered/Resolved]
  - Urticaria [Unknown]
  - Lymphadenopathy [Unknown]
  - Swollen tongue [Recovered/Resolved]
  - Dyspnoea [Recovered/Resolved]
